FAERS Safety Report 5764890-2 (Version None)
Quarter: 2008Q2

REPORT INFORMATION
  Report Type: 
  Country: None (occurrence: None)
  Receive Date: 20080611
  Receipt Date: 20080603
  Transmission Date: 20081010
  Serious: Yes (Hospitalization)
  Sender: FDA-Public Use
  Company Number: FR-AVENTIS-200812067FR

PATIENT
  Age: 61 Year
  Sex: Male

DRUGS (3)
  1. FLAGYL [Suspect]
     Route: 048
     Dates: start: 20080118, end: 20080122
  2. NEXIUM [Suspect]
     Route: 048
     Dates: start: 20080116, end: 20080122
  3. ROCEPHIN [Suspect]
     Route: 030
     Dates: start: 20080118, end: 20080123

REACTIONS (3)
  - BICYTOPENIA [None]
  - LEUKOPENIA [None]
  - THROMBOCYTOPENIA [None]
